FAERS Safety Report 6426402-X (Version None)
Quarter: 2009Q4

REPORT INFORMATION
  Report Type: 
  Country: None (occurrence: None)
  Receive Date: 20091030
  Receipt Date: 20091016
  Transmission Date: 20100525
  Serious: Yes (Hospitalization, Other)
  Sender: FDA-Public Use
  Company Number: 2009BI034334

PATIENT
  Age: 28 Year
  Sex: Male

DRUGS (10)
  1. ZEVALIN [Suspect]
     Indication: B-CELL LYMPHOMA
     Dates: start: 20080731, end: 20080731
  2. CARMUSTINE [Concomitant]
  3. ETOPOSIDE [Concomitant]
  4. CYTARABINE [Concomitant]
  5. MELPHALAN [Concomitant]
  6. RITUXIMAB [Concomitant]
  7. CYCLOPHOSPHAMIDE [Concomitant]
  8. DOXORUBICIN HCL [Concomitant]
  9. VINDESINE [Concomitant]
  10. BLEOMYCIN SULFATE [Concomitant]

REACTIONS (2)
  - ARTHRITIS BACTERIAL [None]
  - PNEUMOCOCCAL INFECTION [None]
